FAERS Safety Report 12135844 (Version 5)
Quarter: 2016Q3

REPORT INFORMATION
  Report Type: Spontaneous
  Country: GB (occurrence: GB)
  Receive Date: 20160302
  Receipt Date: 20160905
  Transmission Date: 20161109
  Serious: Yes (Hospitalization, Other)
  Sender: FDA-Public Use
  Company Number: GB-ROCHE-1718881

PATIENT
  Age: 41 Year
  Sex: Female

DRUGS (1)
  1. HERCEPTIN [Suspect]
     Active Substance: TRASTUZUMAB
     Indication: PRODUCT USED FOR UNKNOWN INDICATION
     Dosage: CYCLE 7.
     Route: 058

REACTIONS (15)
  - Feeling abnormal [Unknown]
  - Skin discolouration [Unknown]
  - Rhinalgia [Unknown]
  - Chest pain [Unknown]
  - Back pain [Unknown]
  - Fatigue [Not Recovered/Not Resolved]
  - Nail ridging [Unknown]
  - Nail disorder [Unknown]
  - Oral pain [Unknown]
  - Dyspnoea [Unknown]
  - Palpitations [Unknown]
  - Lymph gland infection [Unknown]
  - Erythema [Unknown]
  - Sleep disorder [Unknown]
  - Asthenia [Not Recovered/Not Resolved]

NARRATIVE: CASE EVENT DATE: 20160210
